FAERS Safety Report 4758696-0 (Version None)
Quarter: 2005Q3

REPORT INFORMATION
  Report Type: 
  Country: None (occurrence: None)
  Receive Date: 20050830
  Receipt Date: 20050830
  Transmission Date: 20060218
  Serious: Yes (Hospitalization, Other)
  Sender: FDA-Public Use
  Company Number: None

PATIENT
  Sex: Male
  Weight: 103 kg

DRUGS (2)
  1. INTERFERON-ALPHA [Suspect]
     Indication: RENAL CELL CARCINOMA STAGE UNSPECIFIED
     Dosage: SEE IMAGE
     Route: 058
     Dates: end: 20050826
  2. INTERFERON-ALPHA [Suspect]
     Indication: RENAL CELL CARCINOMA STAGE UNSPECIFIED
     Dosage: SEE IMAGE
     Route: 058
     Dates: start: 20050828

REACTIONS (6)
  - ASTHENIA [None]
  - DIZZINESS [None]
  - FALL [None]
  - NAUSEA [None]
  - URINARY TRACT INFECTION [None]
  - VERTIGO [None]
